FAERS Safety Report 5598331-5 (Version None)
Quarter: 2008Q1

REPORT INFORMATION
  Report Type: 
  Country: None (occurrence: None)
  Receive Date: 20080122
  Receipt Date: 20080116
  Transmission Date: 20080703
  Serious: Yes (Hospitalization)
  Sender: FDA-Public Use
  Company Number: B0500997A

PATIENT
  Age: 88 Year
  Sex: Female
  Weight: 52 kg

DRUGS (13)
  1. VALTREX [Suspect]
     Indication: HERPES ZOSTER
     Dosage: 1000MG THREE TIMES PER DAY
     Route: 048
     Dates: start: 20071212, end: 20071218
  2. LOXONIN [Suspect]
     Indication: HERPES ZOSTER
     Dosage: 60MG THREE TIMES PER DAY
     Route: 048
     Dates: start: 20071212, end: 20071218
  3. TRICHLORMETHIAZIDE [Concomitant]
     Indication: HYPERTENSION
     Dosage: 2MG PER DAY
     Route: 048
     Dates: end: 20071218
  4. AMLODIPINE BESYLATE [Concomitant]
     Indication: HYPERTENSION
     Dosage: 5MG PER DAY
     Route: 048
  5. DIOVAN [Concomitant]
     Indication: HYPERTENSION
     Dosage: 80MG PER DAY
     Route: 048
  6. ARTIST [Concomitant]
     Indication: HYPERTENSION
     Dosage: 10MG PER DAY
     Route: 048
     Dates: end: 20071218
  7. THIATON [Concomitant]
     Dosage: 30MG PER DAY
     Route: 048
     Dates: end: 20071218
  8. GASTER D [Concomitant]
     Indication: GASTRITIS
     Dosage: 40MG PER DAY
     Route: 048
     Dates: end: 20071218
  9. MYONAL [Concomitant]
     Dosage: 150MG PER DAY
     Route: 048
     Dates: end: 20071218
  10. CYANOCOBALAMIN [Concomitant]
     Dosage: 1500MG PER DAY
     Route: 048
     Dates: end: 20071218
  11. SELBEX [Concomitant]
     Indication: GASTRITIS
     Dosage: 150MG PER DAY
     Route: 048
     Dates: end: 20071218
  12. ERYTHROCIN [Concomitant]
     Dosage: 200MG PER DAY
     Route: 048
     Dates: end: 20071218
  13. TOFRANIL [Concomitant]
     Indication: INSOMNIA
     Dosage: 25MG PER DAY
     Route: 048
     Dates: end: 20071218

REACTIONS (10)
  - ABNORMAL BEHAVIOUR [None]
  - ALTERED STATE OF CONSCIOUSNESS [None]
  - ENCEPHALOPATHY [None]
  - GAIT DISTURBANCE [None]
  - NAUSEA [None]
  - OLIGURIA [None]
  - RENAL FAILURE ACUTE [None]
  - SOLILOQUY [None]
  - URINE OUTPUT DECREASED [None]
  - VOMITING [None]
